FAERS Safety Report 11192238 (Version 1)
Quarter: 2015Q2

REPORT INFORMATION
  Report Type: Spontaneous
  Country: US (occurrence: US)
  Receive Date: 20150616
  Receipt Date: 20150616
  Transmission Date: 20150821
  Serious: No
  Sender: FDA-Public Use
  Company Number: US-ASTRAZENECA-2015SE55507

PATIENT
  Sex: Male

DRUGS (6)
  1. FUROSEMIDE. [Concomitant]
     Active Substance: FUROSEMIDE
  2. MUCINEX [Concomitant]
     Active Substance: GUAIFENESIN
  3. METOPROLOL [Concomitant]
     Active Substance: METOPROLOL
  4. SPIRIVA [Concomitant]
     Active Substance: TIOTROPIUM BROMIDE MONOHYDRATE
  5. NEXIUM [Concomitant]
     Active Substance: ESOMEPRAZOLE MAGNESIUM
  6. SYMBICORT [Suspect]
     Active Substance: BUDESONIDE\FORMOTEROL FUMARATE DIHYDRATE
     Indication: CHRONIC OBSTRUCTIVE PULMONARY DISEASE
     Dosage: 160/4.5, BID
     Route: 055
     Dates: start: 20150403

REACTIONS (6)
  - Chronic obstructive pulmonary disease [Unknown]
  - Nasal congestion [Unknown]
  - Abdominal discomfort [Unknown]
  - Throat irritation [Unknown]
  - Headache [Unknown]
  - Infection [Unknown]
